FAERS Safety Report 6263393-9 (Version None)
Quarter: 2009Q3

REPORT INFORMATION
  Report Type: 
  Country: None (occurrence: None)
  Receive Date: 20090710
  Receipt Date: 20081007
  Transmission Date: 20100115
  Serious: No
  Sender: FDA-Public Use
  Company Number: A0750951A

PATIENT
  Age: 71 Year
  Sex: Male

DRUGS (6)
  1. FLOVENT [Suspect]
     Indication: ASTHMA
     Dosage: 2PUFF TWICE PER DAY
     Route: 055
     Dates: start: 20080701
  2. PLAVIX [Concomitant]
  3. AVAPRO [Concomitant]
  4. HYTRIN [Concomitant]
  5. METFORMIN HCL [Concomitant]
  6. LIPITOR [Concomitant]

REACTIONS (1)
  - DYSPHONIA [None]
